FAERS Safety Report 4822038-2 (Version None)
Quarter: 2005Q4

REPORT INFORMATION
  Report Type: 
  Country: None (occurrence: None)
  Receive Date: 20051107
  Receipt Date: 20020731
  Transmission Date: 20060501
  Serious: Yes (Other)
  Sender: FDA-Public Use
  Company Number: NSADSS2001021872

PATIENT
  Sex: Female

DRUGS (7)
  1. TOPIRAMATE [Suspect]
     Indication: OBESITY
     Route: 065
  2. ACIPHEX [Concomitant]
     Route: 065
  3. DICLOFENAC [Concomitant]
     Indication: OSTEOARTHRITIS
     Route: 048
     Dates: start: 20000901
  4. FLEXERIL [Concomitant]
     Route: 065
  5. ZANTAC [Concomitant]
     Route: 065
  6. ADVIL [Concomitant]
     Indication: HEADACHE
     Route: 048
     Dates: start: 19950101
  7. IMITREX [Concomitant]
     Indication: MIGRAINE
     Route: 045
     Dates: start: 20000914

REACTIONS (5)
  - ALANINE AMINOTRANSFERASE INCREASED [None]
  - ASPARTATE AMINOTRANSFERASE INCREASED [None]
  - HEPATITIS ACUTE [None]
  - LIVER FUNCTION TEST ABNORMAL [None]
  - NAUSEA [None]
